FAERS Safety Report 16375362 (Version 3)
Quarter: 2021Q4

REPORT INFORMATION
  Report Type: Spontaneous
  Country: NL (occurrence: NL)
  Receive Date: 20190531
  Receipt Date: 20211106
  Transmission Date: 20220303
  Serious: Yes (Hospitalization, Other)
  Sender: FDA-Public Use
  Company Number: AN-ACTAVIS-2006-05853

PATIENT
  Age: 43 Year
  Sex: Female

DRUGS (3)
  1. AMOXICILLIN [Suspect]
     Active Substance: AMOXICILLIN
     Indication: Gingivitis
     Dosage: UNK
     Route: 048
  2. METRONIDAZOLE [Suspect]
     Active Substance: METRONIDAZOLE
     Indication: Gingivitis
     Dosage: UNK
     Route: 048
  3. CEFUROXIME [Suspect]
     Active Substance: CEFUROXIME
     Indication: Gingivitis
     Dosage: UNK
     Route: 048

REACTIONS (4)
  - Stevens-Johnson syndrome [Recovered/Resolved]
  - Chills [Unknown]
  - Oedema peripheral [Unknown]
  - Malaise [Unknown]

NARRATIVE: CASE EVENT DATE: 20060101
